FAERS Safety Report 17391485 (Version 1)
Quarter: 2020Q1

REPORT INFORMATION
  Report Type: Spontaneous
  Country: FR (occurrence: FR)
  Receive Date: 20200207
  Receipt Date: 20200207
  Transmission Date: 20200409
  Serious: Yes (Hospitalization)
  Sender: FDA-Public Use
  Company Number: FR-ANIPHARMA-2020-FR-000041

PATIENT
  Age: 65 Year
  Sex: Female

DRUGS (1)
  1. ARIMIDEX [Suspect]
     Active Substance: ANASTROZOLE
     Indication: INVASIVE DUCTAL BREAST CARCINOMA
     Dosage: UNKNOWN
     Route: 048
     Dates: start: 201201, end: 201811

REACTIONS (7)
  - Ovarian cancer [Unknown]
  - Constipation [Unknown]
  - Fallopian tube cancer [Unknown]
  - Dysuria [Unknown]
  - Metastases to peritoneum [Unknown]
  - Intestinal metastasis [Unknown]
  - Skin cancer [Unknown]

NARRATIVE: CASE EVENT DATE: 2014
